FAERS Safety Report 5940068-4 (Version None)
Quarter: 2008Q4

REPORT INFORMATION
  Report Type: 
  Country: None (occurrence: None)
  Receive Date: 20081104
  Receipt Date: 20081027
  Transmission Date: 20090506
  Serious: Yes (Other)
  Sender: FDA-Public Use
  Company Number: PHHY2008BR26244

PATIENT
  Age: 61 Year
  Sex: Male

DRUGS (2)
  1. GALVUS [Suspect]
     Dosage: 100 MG/UNK
  2. GALVUS MET COMBIPACK [Suspect]
     Dosage: 850/50 MG

REACTIONS (2)
  - BLOOD GLUCOSE INCREASED [None]
  - DIABETES MELLITUS INADEQUATE CONTROL [None]
